FAERS Safety Report 4887398-5 (Version None)
Quarter: 2006Q1

REPORT INFORMATION
  Report Type: 
  Country: None (occurrence: None)
  Receive Date: 20060118
  Receipt Date: 20060110
  Transmission Date: 20060701
  Serious: No
  Sender: FDA-Public Use
  Company Number: 2005BI022058

PATIENT
  Sex: Male

DRUGS (2)
  1. AVONEX [Suspect]
     Indication: MULTIPLE SCLEROSIS
     Dosage: 30 UG; QW; IM
     Route: 030
  2. STEROIDS (NOS) [Concomitant]

REACTIONS (3)
  - BENIGN NEOPLASM OF SPINAL CORD [None]
  - INSOMNIA [None]
  - OSTEOARTHRITIS [None]
